FAERS Safety Report 22207425 (Version 1)
Quarter: 2023Q2

REPORT INFORMATION
  Report Type: Spontaneous
  Country: US (occurrence: None)
  Receive Date: 20230413
  Receipt Date: 20230413
  Transmission Date: 20230721
  Serious: No
  Sender: FDA-Public Use
  Company Number: None

PATIENT
  Age: 40 Year
  Sex: Female
  Weight: 71.55 kg

DRUGS (1)
  1. ROBAXACET [Suspect]
     Active Substance: ACETAMINOPHEN\METHOCARBAMOL
     Indication: Muscle spasms
     Dosage: OTHER QUANTITY : 2 TABLET(S);?FREQUENCY : EVERY 6 HOURS;?
     Route: 048
     Dates: start: 20230408, end: 20230408

REACTIONS (4)
  - Pyrexia [None]
  - Influenza like illness [None]
  - Eye irritation [None]
  - Heart rate increased [None]

NARRATIVE: CASE EVENT DATE: 20230410
